FAERS Safety Report 16792039 (Version 1)
Quarter: 2019Q3

REPORT INFORMATION
  Report Type: Other
  Country: CA (occurrence: CA)
  Receive Date: 20190910
  Receipt Date: 20190910
  Transmission Date: 20191005
  Serious: Yes (Other)
  Sender: FDA-Public Use
  Company Number: CA-PFIZER INC-2019381858

PATIENT
  Age: 24 Year
  Sex: Male

DRUGS (1)
  1. HEPARIN SODIUM. [Suspect]
     Active Substance: HEPARIN SODIUM
     Dosage: 5000 IU EVERY 8 HOURS
     Route: 058

REACTIONS (7)
  - Dyspnoea [Unknown]
  - Heparin-induced thrombocytopenia [Unknown]
  - Platelet aggregation [Unknown]
  - Chest pain [Unknown]
  - False positive investigation result [Unknown]
  - Pulmonary embolism [Unknown]
  - Hypoxia [Unknown]
